FAERS Safety Report 7780667-0 (Version None)
Quarter: 2011Q3

REPORT INFORMATION
  Report Type: 
  Country: None (occurrence: None)
  Receive Date: 20110927
  Receipt Date: 20110302
  Transmission Date: 20111222
  Serious: No
  Sender: FDA-Public Use
  Company Number: US-BRISTOL-MYERS SQUIBB COMPANY-15583958

PATIENT
  Age: 80 Year
  Sex: Male
  Weight: 98 kg

DRUGS (3)
  1. HYDROCHLOROTHIAZIDE [Suspect]
  2. RHINOCORT [Concomitant]
     Dosage: AQ
     Route: 045
  3. AVAPRO [Suspect]

REACTIONS (1)
  - DIZZINESS [None]
